FAERS Safety Report 8603774-9 (Version None)
Quarter: 2012Q3

REPORT INFORMATION
  Report Type: 
  Country: None (occurrence: None)
  Receive Date: 20120817
  Receipt Date: 20120809
  Transmission Date: 20120928
  Serious: No
  Sender: FDA-Public Use
  Company Number: US-ASTRAZENECA-2012SE57011

PATIENT
  Age: 44 Year
  Sex: Male
  Weight: 110.2 kg

DRUGS (14)
  1. ROXICODONE [Concomitant]
  2. LOFIBRA [Concomitant]
  3. GLUCOTROL [Concomitant]
  4. FLEXERIL [Concomitant]
  5. DURAGESIC-100 [Concomitant]
  6. CLARITIN [Concomitant]
  7. GLUCOPHAGE [Concomitant]
  8. NIZORAL [Concomitant]
  9. LIRAGLUTIDE [Concomitant]
  10. NEXIUM [Suspect]
     Route: 048
  11. XANAX [Concomitant]
  12. CELEBREX [Concomitant]
  13. FLONASE [Concomitant]
  14. WELLBUTRIN XL [Concomitant]

REACTIONS (11)
  - SLEEP APNOEA SYNDROME [None]
  - GASTROOESOPHAGEAL REFLUX DISEASE [None]
  - ANXIETY [None]
  - PAIN [None]
  - DEPRESSION [None]
  - OSTEOARTHRITIS [None]
  - DIABETES MELLITUS [None]
  - OBESITY [None]
  - CHEST DISCOMFORT [None]
  - RHINITIS ALLERGIC [None]
  - HYPERLIPIDAEMIA [None]
